FAERS Safety Report 8097284-8 (Version None)
Quarter: 2012Q1

REPORT INFORMATION
  Report Type: 
  Country: None (occurrence: None)
  Receive Date: 20120128
  Receipt Date: 20110629
  Transmission Date: 20120608
  Serious: No
  Sender: FDA-Public Use
  Company Number: US-ABBOTT-11P-163-0835204-00

PATIENT
  Age: 46 Year
  Sex: Male

DRUGS (3)
  1. SUDAFED 12 HOUR [Concomitant]
     Indication: SEASONAL ALLERGY
  2. CLARITIN [Concomitant]
     Indication: PRODUCT USED FOR UNKNOWN INDICATION
  3. HUMIRA [Suspect]
     Indication: PSORIASIS
     Dates: start: 20110620

REACTIONS (3)
  - FATIGUE [None]
  - TOOTH INFECTION [None]
  - NECK PAIN [None]
